FAERS Safety Report 7824420-8 (Version None)
Quarter: 2011Q4

REPORT INFORMATION
  Report Type: 
  Country: None (occurrence: None)
  Receive Date: 20111018
  Receipt Date: 20111018
  Transmission Date: 20120403
  Serious: No
  Sender: FDA-Public Use
  Company Number: None

PATIENT
  Sex: Female
  Weight: 395 kg

DRUGS (1)
  1. MEPERIDINE HCL [Suspect]
     Indication: POST PROCEDURAL COMPLICATION
     Dosage: 6.25 MG PRN IV
     Route: 042
     Dates: start: 20110913

REACTIONS (1)
  - RASH ERYTHEMATOUS [None]
